FAERS Safety Report 5421063-0 (Version None)
Quarter: 2007Q3

REPORT INFORMATION
  Report Type: 
  Country: None (occurrence: None)
  Receive Date: 20070821
  Receipt Date: 20070817
  Transmission Date: 20080115
  Serious: Yes (Congenital Anomaly)
  Sender: FDA-Public Use
  Company Number: B0358996A

PATIENT
  Sex: Male
  Weight: 3.4 kg

DRUGS (6)
  1. LAMIVUDINE + ZIDOVUDINE [Suspect]
     Indication: VIRAL INFECTION
     Dosage: 600MG PER DAY
     Dates: start: 20040130, end: 20040601
  2. ZIDOVUDINE [Suspect]
     Indication: VIRAL INFECTION
     Dosage: 600MG PER DAY
     Dates: start: 20040601, end: 20040720
  3. NELFINAVIR [Suspect]
     Indication: VIRAL INFECTION
     Dosage: 2500MG PER DAY
     Dates: start: 20040130, end: 20040601
  4. LOPINAVIR AND RITONAVIR [Suspect]
     Indication: VIRAL INFECTION
     Dosage: 600MG PER DAY
     Dates: start: 20040601
  5. TENOFOVIR DISOPROXIL FUMARATE [Suspect]
     Indication: VIRAL INFECTION
     Dosage: 300MG PER DAY
     Dates: start: 20040601, end: 20040720
  6. FOLATE [Suspect]

REACTIONS (4)
  - ABDOMINAL DISTENSION [None]
  - ABDOMINAL HERNIA [None]
  - CARDIAC MURMUR [None]
  - CRYPTORCHISM [None]
